FAERS Safety Report 6446189-4 (Version None)
Quarter: 2009Q4

REPORT INFORMATION
  Report Type: 
  Country: None (occurrence: None)
  Receive Date: 20091119
  Receipt Date: 20091111
  Transmission Date: 20100525
  Serious: Yes (Death, Other)
  Sender: FDA-Public Use
  Company Number: IT-ABBOTT-09P-083-0604238-01

PATIENT
  Sex: Female

DRUGS (12)
  1. HUMIRA [Suspect]
     Indication: RHEUMATOID ARTHRITIS
     Route: 058
     Dates: start: 20041013, end: 20070622
  2. COMMERCIAL HUMIRA [Concomitant]
     Indication: RHEUMATOID ARTHRITIS
     Route: 058
     Dates: start: 20040818
  3. METHOTREXATE [Concomitant]
     Indication: RHEUMATOID ARTHRITIS
     Dates: start: 20050325
  4. CORDARONE [Concomitant]
     Indication: ARRHYTHMIA
     Dates: start: 20071001
  5. LENTOKALIUM [Concomitant]
     Indication: BLOOD POTASSIUM DECREASED
     Dates: start: 20071001
  6. DELATACORTENE [Concomitant]
     Indication: RHEUMATOID ARTHRITIS
     Dates: start: 20070424
  7. CONTRAMAL [Concomitant]
     Indication: RHEUMATOID ARTHRITIS
     Dates: start: 20030325
  8. SEQUACOR [Concomitant]
     Indication: HYPERTENSION
     Dates: start: 20071001
  9. MEDIPO [Concomitant]
     Indication: DYSLIPIDAEMIA
     Dates: start: 20071001
  10. LANSOX [Concomitant]
     Indication: PROPHYLAXIS AGAINST GASTROINTESTINAL ULCER
     Dates: start: 20071001
  11. PERIDON [Concomitant]
     Indication: PROPHYLAXIS AGAINST GASTROINTESTINAL ULCER
     Dates: start: 20071001
  12. TICLID [Concomitant]
     Indication: HYPERTENSION
     Dates: start: 20071001

REACTIONS (2)
  - BRAIN NEOPLASM MALIGNANT [None]
  - DEATH [None]
